FAERS Safety Report 4293631-3 (Version None)
Quarter: 2004Q1

REPORT INFORMATION
  Report Type: 
  Country: None (occurrence: None)
  Receive Date: 20040210
  Receipt Date: 20040130
  Transmission Date: 20041129
  Serious: Yes (Hospitalization, Other)
  Sender: FDA-Public Use
  Company Number: HQWYE756930JAN04

PATIENT
  Age: 10 Month
  Sex: Male

DRUGS (2)
  1. CHILDREN'S ADVIL [Suspect]
     Dosage: 75 MG 4X PER 1 DAY ORAL
     Route: 048
     Dates: start: 20020408, end: 20020410
  2. ACETAMINOPHEN [Concomitant]

REACTIONS (6)
  - CONJUNCTIVITIS INFECTIVE [None]
  - OTITIS MEDIA [None]
  - PERIORBITAL CELLULITIS [None]
  - PYREXIA [None]
  - SINUSITIS [None]
  - UPPER RESPIRATORY TRACT INFECTION [None]
